FAERS Safety Report 6970092-4 (Version None)
Quarter: 2010Q3

REPORT INFORMATION
  Report Type: 
  Country: None (occurrence: None)
  Receive Date: 20100903
  Receipt Date: 20100819
  Transmission Date: 20110219
  Serious: Yes (Death, Hospitalization)
  Sender: FDA-Public Use
  Company Number: 1000015449

PATIENT
  Age: 66 Year
  Sex: Female

DRUGS (10)
  1. ESCITALOPRAM [Suspect]
     Indication: DEPRESSION
     Dosage: 20 MG (20 MG, 1 IN 1 D) ORAL
     Route: 048
     Dates: start: 20100602, end: 20100622
  2. PSYCHOTROPIC DRUGS (NOS) [Suspect]
     Dates: start: 20100622
  3. VALDOXAN [Suspect]
     Dosage: 25 MG (25 MG, 1 IN 1 D)
  4. RIVOTRIL (TABLETS) [Concomitant]
  5. NEXIUM [Concomitant]
  6. SECTRAL [Concomitant]
  7. REFRESCH COLLYRE (EYE DROPS) [Concomitant]
  8. LEVOTHYROXINE SODIUM [Concomitant]
  9. PRAVASTATIN [Concomitant]
  10. LYSANXIA [Concomitant]

REACTIONS (4)
  - COMPLETED SUICIDE [None]
  - DROWNING [None]
  - MULTIPLE DRUG OVERDOSE INTENTIONAL [None]
  - ROAD TRAFFIC ACCIDENT [None]
